FAERS Safety Report 23372860 (Version 3)
Quarter: 2024Q1

REPORT INFORMATION
  Report Type: Spontaneous
  Country: US (occurrence: US)
  Receive Date: 20240105
  Receipt Date: 20240214
  Transmission Date: 20240410
  Serious: No
  Sender: FDA-Public Use
  Company Number: US-PFIZER INC-202300458106

PATIENT
  Age: 71 Year
  Sex: Female
  Weight: 44.898 kg

DRUGS (9)
  1. PAXLOVID [Suspect]
     Active Substance: NIRMATRELVIR\RITONAVIR
     Indication: COVID-19 treatment
     Dosage: 3 DF, 2X/DAY
     Dates: start: 20231221, end: 20231225
  2. LUPI [Concomitant]
     Dosage: STARTED YEARS AGO, DAILY FOR YEARS
     Dates: start: 200001
  3. MOTEGRITY [Concomitant]
     Active Substance: PRUCALOPRIDE SUCCINATE
     Dosage: STARTED YEARS AGO, DAILY FOR A FEW YEARS
  4. ROSUVASTATIN [Concomitant]
     Active Substance: ROSUVASTATIN
     Dosage: STARTED 1-2 YEARS, DAILY FOR 1-2 YEARS
  5. GABAPENTIN [Concomitant]
     Active Substance: GABAPENTIN
     Dosage: STARTED 6.5 YEARS AGO, DAILY FOR 6 YEARS
  6. COLACE [Concomitant]
     Active Substance: DOCUSATE SODIUM
     Dosage: STARTED YEARS AGO, DAILY FOR YEARS
  7. MIRALAX [Concomitant]
     Active Substance: POLYETHYLENE GLYCOL 3350
     Dosage: STARTED YEARS AGO, DAILY FOR YEARS
  8. METAMUCIL [Concomitant]
     Active Substance: PLANTAGO SEED
     Dosage: STARTED YEARS AGO, DAILY FOR YEARS
  9. MELATONIN [Concomitant]
     Active Substance: MELATONIN
     Dosage: STARTED YEARS AGO, DAILY FOR YEARS

REACTIONS (3)
  - COVID-19 [Recovered/Resolved]
  - Disease recurrence [Recovered/Resolved]
  - Diarrhoea [Recovered/Resolved]

NARRATIVE: CASE EVENT DATE: 20231201
